FAERS Safety Report 9507657 (Version 1)
Quarter: 2013Q3

REPORT INFORMATION
  Report Type: Spontaneous
  Country: US (occurrence: None)
  Receive Date: 20130906
  Receipt Date: 20130906
  Transmission Date: 20140515
  Serious: Yes (Hospitalization)
  Sender: FDA-Public Use
  Company Number: None

PATIENT
  Age: 70 Year
  Sex: Male
  Weight: 74.5 kg

DRUGS (1)
  1. SL-401 [Suspect]
     Route: 042
     Dates: start: 20130812, end: 20130816

REACTIONS (1)
  - Hyponatraemia [None]
